FAERS Safety Report 11528259 (Version 1)
Quarter: 2015Q3

REPORT INFORMATION
  Report Type: Spontaneous
  Country: US (occurrence: US)
  Receive Date: 20150921
  Receipt Date: 20150921
  Transmission Date: 20151125
  Serious: No
  Sender: FDA-Public Use
  Company Number: US-ACTELION PHARMACEUTICALS US, INC.-A-US2015-111417

PATIENT
  Age: 71 Year
  Sex: Female

DRUGS (6)
  1. VENTAVIS [Suspect]
     Active Substance: ILOPROST
     Indication: COR PULMONALE CHRONIC
     Dosage: UNK
     Route: 055
     Dates: start: 201009, end: 201101
  2. VENTAVIS [Suspect]
     Active Substance: ILOPROST
     Dosage: 5 MCG, 3X/DAY
     Route: 055
  3. VENTAVIS [Suspect]
     Active Substance: ILOPROST
     Dosage: UNK
     Route: 055
     Dates: start: 201212, end: 2013
  4. VENTAVIS [Suspect]
     Active Substance: ILOPROST
     Dosage: (10 MCG/ML)
     Route: 055
     Dates: start: 20130815
  5. VENTAVIS [Suspect]
     Active Substance: ILOPROST
     Dosage: 5 MCG, 6X/DAY (10 MCG/ML)
     Route: 055
     Dates: start: 20140415
  6. OPSUMIT [Suspect]
     Active Substance: MACITENTAN
     Indication: COR PULMONALE CHRONIC
     Route: 048

REACTIONS (10)
  - Cardiac flutter [Unknown]
  - Ocular discomfort [Unknown]
  - Flushing [Unknown]
  - Chest discomfort [Unknown]
  - Oedema peripheral [Unknown]
  - Gastrointestinal disorder [Unknown]
  - Dyspnoea [Unknown]
  - Head discomfort [Unknown]
  - Headache [Unknown]
  - Neck pain [Unknown]
